FAERS Safety Report 7574503-5 (Version None)
Quarter: 2011Q2

REPORT INFORMATION
  Report Type: 
  Country: None (occurrence: None)
  Receive Date: 20110627
  Receipt Date: 20110614
  Transmission Date: 20111010
  Serious: Yes (Other)
  Sender: FDA-Public Use
  Company Number: US-BAYER-2011-007250

PATIENT
  Sex: Female
  Weight: 80.726 kg

DRUGS (6)
  1. LEXAPRO [Concomitant]
     Dosage: 10 MG, QD
     Route: 048
  2. SUDAFED 12 HOUR [Concomitant]
  3. DILTIAZEM [Concomitant]
     Indication: RECTAL HAEMORRHAGE
  4. YAZ [Suspect]
     Indication: PRODUCT USED FOR UNKNOWN INDICATION
     Dosage: UNK
     Route: 048
     Dates: start: 20070401
  5. LIDOCAINE [Concomitant]
     Indication: RECTAL HAEMORRHAGE
  6. AMOXIL [Concomitant]

REACTIONS (3)
  - BILIARY DYSKINESIA [None]
  - PAIN [None]
  - CHOLECYSTITIS CHRONIC [None]
